FAERS Safety Report 21998167 (Version 2)
Quarter: 2023Q2

REPORT INFORMATION
  Report Type: Spontaneous
  Country: US (occurrence: US)
  Receive Date: 20230216
  Receipt Date: 20230409
  Transmission Date: 20230721
  Serious: No
  Sender: FDA-Public Use
  Company Number: US-LEO Pharma-349210

PATIENT
  Sex: Female

DRUGS (2)
  1. ADBRY [Suspect]
     Active Substance: TRALOKINUMAB-LDRM
     Indication: Dermatitis atopic
     Dosage: DOSAGE : 300 MG UNDER THE SKIN EVERY TWO WEEKS
     Dates: start: 202301
  2. ADBRY [Suspect]
     Active Substance: TRALOKINUMAB-LDRM
     Indication: Dermatitis atopic
     Dosage: DOSAGE : 300 MG UNDER THE SKIN EVERY TWO WEEKS
     Dates: start: 202301

REACTIONS (3)
  - Injection site irritation [Unknown]
  - Incorrect dose administered [Unknown]
  - Injection site reaction [Unknown]

NARRATIVE: CASE EVENT DATE: 20230101
